FAERS Safety Report 10456620 (Version 2)
Quarter: 2014Q4

REPORT INFORMATION
  Report Type: Spontaneous
  Country: FR (occurrence: None)
  Receive Date: 20140912
  Receipt Date: 20141023
  Transmission Date: 20150528
  Serious: Yes (Hospitalization)
  Sender: FDA-Public Use
  Company Number: 7318580

PATIENT
  Age: 38 Year
  Sex: Female

DRUGS (4)
  1. COLCHIMAX [Suspect]
     Active Substance: COLCHICINE\DICYCLOMINE HYDROCHLORIDE
     Indication: PRODUCT USED FOR UNKNOWN INDICATION
     Dosage: 52 TABLETS (ESTIMATED INGESTED DOSE OF 0.68 MG/KG). 2 DAYS
     Route: 048
     Dates: start: 20140809, end: 20140810
  2. PROZAC [Concomitant]
     Active Substance: FLUOXETINE HYDROCHLORIDE
  3. LEVOTHYROX (LEVOTHYROXINE SODIUM) (LEVOTHYROXINE SODIUM) [Suspect]
     Active Substance: LEVOTHYROXINE SODIUM
     Indication: PRODUCT USED FOR UNKNOWN INDICATION
     Dosage: 1 DF, MORNING, ORAL
     Route: 048
  4. SERESTA [Suspect]
     Active Substance: OXAZEPAM
     Indication: PRODUCT USED FOR UNKNOWN INDICATION
     Dosage: 1 DF, MORNING, NOON AND EVENING, ORAL
     Route: 048
     Dates: start: 20140809, end: 20140810

REACTIONS (16)
  - Dehydration [None]
  - Disseminated intravascular coagulation [None]
  - Somnolence [None]
  - Thrombocytopenia [None]
  - Diarrhoea [None]
  - Dry mouth [None]
  - Leukopenia [None]
  - Thirst [None]
  - Hepatotoxicity [None]
  - Hepatocellular injury [None]
  - Drug level increased [None]
  - Tachycardia [None]
  - Abdominal pain [None]
  - Toxicity to various agents [None]
  - Intentional overdose [None]
  - Vomiting [None]

NARRATIVE: CASE EVENT DATE: 20140811
